FAERS Safety Report 19088208 (Version 1)
Quarter: 2021Q2

REPORT INFORMATION
  Report Type: Spontaneous
  Country: US (occurrence: US)
  Receive Date: 20210402
  Receipt Date: 20210402
  Transmission Date: 20210717
  Serious: Yes (Disabling)
  Sender: FDA-Public Use
  Company Number: US-PFIZER INC-2020119460

PATIENT
  Age: 57 Year

DRUGS (1)
  1. CELEBREX [Suspect]
     Active Substance: CELECOXIB
     Dosage: 100MG OR 200MG DAILY (1 ? 2 CAPSULE DAILY)

REACTIONS (1)
  - Arthritis [Unknown]
